FAERS Safety Report 9735779 (Version 1)
Quarter: 2013Q4

REPORT INFORMATION
  Report Type: Spontaneous
  Country: US (occurrence: US)
  Receive Date: 20131206
  Receipt Date: 20131206
  Transmission Date: 20140711
  Serious: No
  Sender: FDA-Public Use
  Company Number: US-GILEAD-2009-0023111

PATIENT
  Sex: Female
  Weight: 58.97 kg

DRUGS (10)
  1. LETAIRIS [Suspect]
     Indication: PULMONARY ARTERIAL HYPERTENSION
     Route: 048
     Dates: start: 20081126
  2. REVATIO [Concomitant]
  3. LASIX [Concomitant]
  4. AUGMENTIN [Concomitant]
  5. NEXIUM [Concomitant]
  6. BONIVA [Concomitant]
  7. ASPIRIN [Concomitant]
  8. POTASSIUM CHLORIDE [Concomitant]
  9. CALCIUM +D [Concomitant]
  10. FEOSOL [Concomitant]

REACTIONS (5)
  - Pain in extremity [Unknown]
  - Arthralgia [Unknown]
  - Local swelling [Unknown]
  - Joint swelling [Unknown]
  - Diarrhoea [Unknown]
